FAERS Safety Report 19256470 (Version 1)
Quarter: 2021Q2

REPORT INFORMATION
  Report Type: Spontaneous
  Country: US (occurrence: US)
  Receive Date: 20210514
  Receipt Date: 20210514
  Transmission Date: 20210717
  Serious: Yes (Life-Threatening, Hospitalization, Other)
  Sender: FDA-Public Use
  Company Number: US-AUROBINDO-AUR-APL-2021-019336

PATIENT
  Age: 69 Year
  Sex: Male

DRUGS (1)
  1. CLINDAMYCIN. [Suspect]
     Active Substance: CLINDAMYCIN
     Indication: PROPHYLAXIS
     Dosage: 300 MILLIGRAM, 3 TIMES A DAY
     Route: 065

REACTIONS (10)
  - Clostridium difficile colitis [Recovered/Resolved]
  - Hypotension [Recovered/Resolved]
  - Oedema peripheral [Recovered/Resolved]
  - Scrotal oedema [Recovered/Resolved]
  - Localised oedema [Recovered/Resolved]
  - Pseudomembranous colitis [Recovered/Resolved]
  - Colitis ischaemic [Recovered/Resolved]
  - Anaemia [Recovered/Resolved]
  - Ileus [Recovered/Resolved]
  - Shock [Recovered/Resolved]
